FAERS Safety Report 19415477 (Version 1)
Quarter: 2021Q2

REPORT INFORMATION
  Report Type: Report from Study
  Country: MX (occurrence: MX)
  Receive Date: 20210614
  Receipt Date: 20210614
  Transmission Date: 20210717
  Serious: Yes (Death, Hospitalization)
  Sender: FDA-Public Use
  Company Number: MX-ASTRAZENECA-2021A448306

PATIENT
  Age: 69 Year
  Sex: Female
  Weight: 69 kg

DRUGS (5)
  1. ASPIRIN PROTEC [Concomitant]
     Active Substance: ASPIRIN
     Dosage: 1 EVERY 24 HOURS FOR A MONTH
  2. ESOMEPRAZOLE. [Concomitant]
     Active Substance: ESOMEPRAZOLE MAGNESIUM
     Dosage: 1 EVERY 24 HOURS FOR A MONTH
     Route: 048
  3. BACTRIM [Concomitant]
     Active Substance: SULFAMETHOXAZOLE\TRIMETHOPRIM
     Dosage: ONE EVERY 8 HOURS FOR 5 DAYS
  4. PULMICORT TURBUHALER [Suspect]
     Active Substance: BUDESONIDE
     Indication: COVID-19
     Dosage: 0.250 MG/ML IN NEBULIZATION 1 PLUS 3 ML OF PHYSIOLOGICAL SOLUTION EVERY 12 HOURS
     Route: 055
  5. PARACETAMOL [Concomitant]
     Active Substance: ACETAMINOPHEN
     Dosage: ONE EVERY 8 HOURS IN CASE OF FEVER

REACTIONS (3)
  - Condition aggravated [Unknown]
  - Off label use [Unknown]
  - Death [Fatal]
